FAERS Safety Report 20866504 (Version 1)
Quarter: 2022Q2

REPORT INFORMATION
  Report Type: Spontaneous
  Country: US (occurrence: US)
  Receive Date: 20220524
  Receipt Date: 20220524
  Transmission Date: 20220720
  Serious: No
  Sender: FDA-Public Use
  Company Number: ALC2021US004885

PATIENT

DRUGS (1)
  1. SIMBRINZA [Suspect]
     Active Substance: BRIMONIDINE TARTRATE\BRINZOLAMIDE
     Indication: Product used for unknown indication
     Dosage: 2 DRP, QD
     Route: 065

REACTIONS (4)
  - Foreign body sensation in eyes [Unknown]
  - Eye irritation [Unknown]
  - Visual impairment [Unknown]
  - Product deposit [Unknown]
